FAERS Safety Report 24981275 (Version 1)
Quarter: 2025Q1

REPORT INFORMATION
  Report Type: Spontaneous
  Country: US (occurrence: None)
  Receive Date: 20250217
  Receipt Date: 20250217
  Transmission Date: 20250408
  Serious: Yes (Other)
  Sender: FDA-CTU
  Company Number: None

PATIENT
  Age: 50 Year
  Sex: Female
  Weight: 51.75 kg

DRUGS (2)
  1. CHLORHEXIDINE [Suspect]
     Active Substance: CHLORHEXIDINE
     Indication: Infection prophylaxis
     Dates: start: 20250214, end: 20250214
  2. port for chemotherapy [Concomitant]

REACTIONS (1)
  - Hypersensitivity [None]

NARRATIVE: CASE EVENT DATE: 20250214
